FAERS Safety Report 7354828-9 (Version None)
Quarter: 2011Q1

REPORT INFORMATION
  Report Type: 
  Country: None (occurrence: None)
  Receive Date: 20110316
  Receipt Date: 20110310
  Transmission Date: 20110831
  Serious: Yes (Hospitalization)
  Sender: FDA-Public Use
  Company Number: US-BRISTOL-MYERS SQUIBB COMPANY-15600166

PATIENT
  Sex: Male

DRUGS (2)
  1. LYSODREN [Suspect]
     Indication: ADRENAL CARCINOMA
     Dates: end: 20110305
  2. HYDROCORTISONE [Concomitant]

REACTIONS (1)
  - DYSPHAGIA [None]
